FAERS Safety Report 20693943 (Version 1)
Quarter: 2022Q2

REPORT INFORMATION
  Report Type: Spontaneous
  Country: CN (occurrence: CN)
  Receive Date: 20220411
  Receipt Date: 20220411
  Transmission Date: 20220721
  Serious: Yes (Death, Other)
  Sender: FDA-Public Use
  Company Number: CN-KYOWAKIRIN-2022AKK005132

PATIENT

DRUGS (4)
  1. DARBEPOETIN ALFA [Suspect]
     Active Substance: DARBEPOETIN ALFA
     Indication: Chronic kidney disease
     Dosage: 20 UG, 1X/WEEK
     Route: 042
  2. DARBEPOETIN ALFA [Suspect]
     Active Substance: DARBEPOETIN ALFA
     Indication: Anaemia
     Dosage: UNK, 1X/WEEK WITH MAXIMUM DOSES OF 60 MCG EACH TIME
     Route: 042
  3. EPOETIN ALFA [Suspect]
     Active Substance: ERYTHROPOIETIN
     Indication: Chronic kidney disease
     Dosage: 3000 IU, 3X/WEEK
     Route: 042
  4. EPOETIN ALFA [Suspect]
     Active Substance: ERYTHROPOIETIN
     Indication: Anaemia
     Dosage: TWICE OR 3 TIMES A WEEK, WITH A MAXIMUM DOSE OF 3000 IU EACH TIME
     Route: 042

REACTIONS (7)
  - Death [Fatal]
  - Sudden death [Fatal]
  - Death [Fatal]
  - Chest pain [Recovering/Resolving]
  - Cerebral haemorrhage [Recovering/Resolving]
  - Cerebral haemorrhage [Recovering/Resolving]
  - Hypertensive encephalopathy [Recovering/Resolving]
